FAERS Safety Report 8964819 (Version 2)
Quarter: 2013Q1

REPORT INFORMATION
  Report Type: Spontaneous
  Country: US (occurrence: US)
  Receive Date: 20121214
  Receipt Date: 20130228
  Transmission Date: 20140127
  Serious: Yes (Other)
  Sender: FDA-Public Use
  Company Number: US-MERCK-1212USA004863

PATIENT
  Sex: Male

DRUGS (5)
  1. NASONEX [Suspect]
     Indication: ASTHMA
     Dosage: 50 MICROGRAM, 1 STANDARD DOSE OF 17, 2 INHALATIONS TO EACH NOSTRIL ONCE IN MORNING
     Route: 045
  2. ADVAIR [Concomitant]
  3. OMEPRAZOLE [Concomitant]
  4. DIVALPROEX SODIUM [Concomitant]
  5. DEPAKOTE [Concomitant]

REACTIONS (3)
  - Surgery [Not Recovered/Not Resolved]
  - Back pain [Not Recovered/Not Resolved]
  - Product packaging issue [Unknown]
